FAERS Safety Report 4281046-3 (Version None)
Quarter: 2004Q1

REPORT INFORMATION
  Report Type: 
  Country: None (occurrence: None)
  Receive Date: 20040127
  Receipt Date: 20040122
  Transmission Date: 20041129
  Serious: Yes (Death, Hospitalization)
  Sender: FDA-Public Use
  Company Number: USA-2004-0012559

PATIENT
  Age: 67 Year
  Sex: Male

DRUGS (2)
  1. OXYCONTIN [Suspect]
     Indication: CANCER PAIN
     Dosage: 10 MG, Q6H PRN
     Route: 051
     Dates: start: 20020101
  2. MORPHINE [Suspect]
     Indication: CANCER PAIN
     Dosage: MG

REACTIONS (1)
  - HAEMORRHAGE INTRACRANIAL [None]
